FAERS Safety Report 6300633-1 (Version None)
Quarter: 2009Q3

REPORT INFORMATION
  Report Type: 
  Country: None (occurrence: None)
  Receive Date: 20090806
  Receipt Date: 20081215
  Transmission Date: 20100115
  Serious: Yes (Death)
  Sender: FDA-Public Use
  Company Number: US-ABBOTT-08P-163-0490962-00

PATIENT

DRUGS (8)
  1. DEPAKOTE ER [Suspect]
     Indication: SCHIZOPHRENIA
     Route: 048
     Dates: end: 20081122
  2. DEPAKOTE ER [Suspect]
     Indication: SCHIZOAFFECTIVE DISORDER
  3. SEROQUEL XR [Concomitant]
     Indication: SCHIZOPHRENIA
  4. SEROQUEL XR [Concomitant]
     Indication: SCHIZOAFFECTIVE DISORDER
  5. FLUVOXAMINE MALEATE [Concomitant]
     Indication: SCHIZOPHRENIA
  6. FLUVOXAMINE MALEATE [Concomitant]
     Indication: SCHIZOAFFECTIVE DISORDER
  7. LORAZEPAM [Concomitant]
     Indication: DRUG USE FOR UNKNOWN INDICATION
  8. INSULIN [Concomitant]
     Indication: TYPE 1 DIABETES MELLITUS
     Route: 058

REACTIONS (1)
  - PANCREATITIS HAEMORRHAGIC [None]
